FAERS Safety Report 25756865 (Version 1)
Quarter: 2025Q3

REPORT INFORMATION
  Report Type: Spontaneous
  Country: US (occurrence: US)
  Receive Date: 20250903
  Receipt Date: 20250903
  Transmission Date: 20251020
  Serious: Yes (Other)
  Sender: STAQ PHARMA INC. OUTSOURCING
  Company Number: US-STAQ Pharma of Ohio, LLC.-2183741

PATIENT
  Age: 46 Year
  Sex: Male
  Weight: 104 kg

DRUGS (1)
  1. SUCCINYLCHOLINE CHLORIDE [Suspect]
     Active Substance: SUCCINYLCHOLINE CHLORIDE
     Indication: General anaesthesia

REACTIONS (1)
  - Therapeutic product effect decreased [Recovered/Resolved]
